FAERS Safety Report 4462983-3 (Version None)
Quarter: 2004Q3

REPORT INFORMATION
  Report Type: 
  Country: None (occurrence: None)
  Receive Date: 20040930
  Receipt Date: 20040921
  Transmission Date: 20050211
  Serious: Yes (Other)
  Sender: FDA-Public Use
  Company Number: 200417219US

PATIENT
  Age: 81 Year
  Sex: Female

DRUGS (4)
  1. GLYBURIDE [Suspect]
     Indication: DIABETES MELLITUS
     Route: 048
     Dates: end: 20040910
  2. METOPROLOL [Concomitant]
  3. ASPIRIN [Concomitant]
  4. LIPITOR [Concomitant]

REACTIONS (3)
  - DRUG TOXICITY [None]
  - PRURITUS [None]
  - RASH ERYTHEMATOUS [None]
